FAERS Safety Report 9772929 (Version 2)
Quarter: 2013Q4

REPORT INFORMATION
  Report Type: Spontaneous
  Country: GR (occurrence: GR)
  Receive Date: 20131219
  Receipt Date: 20131219
  Transmission Date: 20140711
  Serious: Yes (Life-Threatening, Hospitalization)
  Sender: FDA-Public Use
  Company Number: GR-B.I. PHARMACEUTICALS,INC./RIDGEFIELD-2013-BI-18400GB

PATIENT
  Age: 72 Year
  Sex: Male

DRUGS (1)
  1. PRADAXA [Suspect]
     Indication: ATRIAL FIBRILLATION
     Dosage: 220 MG
     Route: 048
     Dates: start: 2013, end: 2013

REACTIONS (2)
  - Central nervous system lesion [Recovered/Resolved]
  - Extrapyramidal disorder [Recovered/Resolved]
